FAERS Safety Report 6167261-2 (Version None)
Quarter: 2009Q2

REPORT INFORMATION
  Report Type: 
  Country: None (occurrence: None)
  Receive Date: 20090424
  Receipt Date: 20090415
  Transmission Date: 20091009
  Serious: No
  Sender: FDA-Public Use
  Company Number: US-ELI_LILLY_AND_COMPANY-US200904003335

PATIENT
  Sex: Male

DRUGS (2)
  1. CIALIS [Suspect]
     Indication: ERECTILE DYSFUNCTION
     Dosage: 2.5 MG, DAILY (1/D)
     Route: 065
     Dates: start: 20081215
  2. CIALIS [Suspect]
     Dosage: 5 MG, DAILY (1/D)
     Route: 065
     Dates: start: 20100301

REACTIONS (5)
  - DRUG INEFFECTIVE [None]
  - ERECTILE DYSFUNCTION [None]
  - EYE DISORDER [None]
  - HEADACHE [None]
  - VISION BLURRED [None]
